FAERS Safety Report 9101966 (Version 1)
Quarter: 2013Q1

REPORT INFORMATION
  Report Type: Spontaneous
  Country: CH (occurrence: CH)
  Receive Date: 20130218
  Receipt Date: 20130218
  Transmission Date: 20140127
  Serious: Yes (Disabling, Other)
  Sender: FDA-Public Use
  Company Number: CH-TEVA-325617ISR

PATIENT
  Age: 57 Year
  Sex: Female

DRUGS (3)
  1. CEFUROXIME [Suspect]
     Indication: OTITIS MEDIA
     Route: 048
     Dates: start: 20110713, end: 20110713
  2. CORTISONE [Suspect]
     Route: 048
     Dates: start: 20110713
  3. ATARAX [Suspect]
     Dosage: 2 DOSAGE FORMS DAILY;
     Route: 048
     Dates: start: 20110713

REACTIONS (12)
  - Anaphylactic reaction [Recovered/Resolved]
  - Angioedema [Recovered/Resolved]
  - Paraesthesia [Not Recovered/Not Resolved]
  - Fatigue [Not Recovered/Not Resolved]
  - Memory impairment [Not Recovered/Not Resolved]
  - Rash [Recovered/Resolved]
  - Depressed level of consciousness [Recovered/Resolved]
  - Disturbance in attention [Not Recovered/Not Resolved]
  - Sleep disorder [Not Recovered/Not Resolved]
  - Disorientation [Not Recovered/Not Resolved]
  - Photophobia [Unknown]
  - Photosensitivity reaction [Unknown]
